FAERS Safety Report 6882985-7 (Version None)
Quarter: 2010Q3

REPORT INFORMATION
  Report Type: 
  Country: None (occurrence: None)
  Receive Date: 20100727
  Receipt Date: 20100716
  Transmission Date: 20110219
  Serious: Yes (Other)
  Sender: FDA-Public Use
  Company Number: US-AMGEN-QUU425090

PATIENT
  Sex: Female

DRUGS (1)
  1. ENBREL [Suspect]
     Indication: RHEUMATOID ARTHRITIS
     Route: 058

REACTIONS (6)
  - BODY TEMPERATURE INCREASED [None]
  - FEELING COLD [None]
  - FEELING HOT [None]
  - HEAT ILLNESS [None]
  - PARAESTHESIA [None]
  - TREMOR [None]
